FAERS Safety Report 25627405 (Version 1)
Quarter: 2025Q3

REPORT INFORMATION
  Report Type: Spontaneous
  Country: US (occurrence: None)
  Receive Date: 20250730
  Receipt Date: 20250730
  Transmission Date: 20251021
  Serious: No
  Sender: FDA-CTU
  Company Number: None

PATIENT
  Age: 33 Year
  Sex: Female
  Weight: 63.45 kg

DRUGS (7)
  1. FLUOXETINE HYDROCHLORIDE [Suspect]
     Active Substance: FLUOXETINE HYDROCHLORIDE
     Indication: Anxiety
     Dosage: 1 TABLET DAILY ORAL
     Route: 048
     Dates: start: 20250502, end: 20250619
  2. HAILEY 1.5/30 [Concomitant]
     Active Substance: ETHINYL ESTRADIOL\NORETHINDRONE ACETATE
  3. ethinyl estradiol 30 mcg / norethindrone acetate 1.5 mg [Concomitant]
  4. DUPIXENT? (dupilumab) shot [Concomitant]
  5. Hydroxyzine 10 mg [Concomitant]
  6. IBUPROFEN [Concomitant]
     Active Substance: IBUPROFEN
  7. TYLENOL [Concomitant]
     Active Substance: ACETAMINOPHEN

REACTIONS (10)
  - Rash macular [None]
  - Alcohol intolerance [None]
  - Paraesthesia oral [None]
  - Paraesthesia [None]
  - Urticaria [None]
  - Night sweats [None]
  - Nightmare [None]
  - Flushing [None]
  - Rash [None]
  - Feeling hot [None]

NARRATIVE: CASE EVENT DATE: 20250516
